FAERS Safety Report 7412061-6 (Version None)
Quarter: 2011Q2

REPORT INFORMATION
  Report Type: 
  Country: None (occurrence: None)
  Receive Date: 20110413
  Receipt Date: 20110406
  Transmission Date: 20111010
  Serious: Yes (Death)
  Sender: FDA-Public Use
  Company Number: IN-BAXTER-2011BH010363

PATIENT

DRUGS (6)
  1. CYCLOPHOSPHAMIDE [Suspect]
     Indication: LYMPHOMA
     Route: 065
  2. CARMUSTINE [Suspect]
     Indication: LYMPHOMA
     Route: 065
  3. ACYCLOVIR [Concomitant]
     Indication: PROPHYLAXIS
     Route: 065
  4. GRANULOCYTE COLONY STIMULATING FACTOR [Concomitant]
     Indication: PRODUCT USED FOR UNKNOWN INDICATION
     Route: 058
  5. ANTIFUNGALS [Concomitant]
     Indication: PROPHYLAXIS
     Route: 065
  6. ETOPOSIDE [Suspect]
     Indication: LYMPHOMA
     Route: 065

REACTIONS (1)
  - MYOCARDITIS [None]
